FAERS Safety Report 5986077-0 (Version None)
Quarter: 2008Q4

REPORT INFORMATION
  Report Type: 
  Country: None (occurrence: None)
  Receive Date: 20081205
  Receipt Date: 20081205
  Transmission Date: 20090506
  Serious: No
  Sender: FDA-Public Use
  Company Number: None

PATIENT
  Age: 30 Year
  Sex: Male
  Weight: 133.8111 kg

DRUGS (1)
  1. SEROQUEL [Suspect]
     Indication: BIPOLAR II DISORDER
     Dosage: 100MG DAILY PO
     Route: 048
     Dates: start: 20060214, end: 20080905

REACTIONS (6)
  - DISTURBANCE IN ATTENTION [None]
  - HUNGER [None]
  - LETHARGY [None]
  - MEMORY IMPAIRMENT [None]
  - TYPE 2 DIABETES MELLITUS [None]
  - WEIGHT INCREASED [None]
